FAERS Safety Report 6040211-5 (Version None)
Quarter: 2009Q1

REPORT INFORMATION
  Report Type: 
  Country: None (occurrence: None)
  Receive Date: 20090116
  Receipt Date: 20080306
  Transmission Date: 20090719
  Serious: No
  Sender: FDA-Public Use
  Company Number: US-BRISTOL-MYERS SQUIBB COMPANY-14041297

PATIENT
  Age: 17 Year
  Sex: Male

DRUGS (3)
  1. ABILIFY [Suspect]
     Indication: AGGRESSION
     Route: 048
     Dates: start: 20071010, end: 20080110
  2. ABILIFY [Suspect]
     Route: 048
     Dates: start: 20071010, end: 20080110
  3. ABILIFY [Suspect]
     Indication: AUTISM
     Route: 048
     Dates: start: 20071010, end: 20080110

REACTIONS (1)
  - GRAND MAL CONVULSION [None]
